FAERS Safety Report 5723876-4 (Version None)
Quarter: 2008Q2

REPORT INFORMATION
  Report Type: 
  Country: None (occurrence: None)
  Receive Date: 20080430
  Receipt Date: 20080428
  Transmission Date: 20081010
  Serious: Yes (Hospitalization)
  Sender: FDA-Public Use
  Company Number: AU-BRISTOL-MYERS SQUIBB COMPANY-14168470

PATIENT

DRUGS (1)
  1. DEFINITY [Suspect]

REACTIONS (1)
  - TRANSIENT ISCHAEMIC ATTACK [None]
